FAERS Safety Report 17822498 (Version 1)
Quarter: 2020Q2

REPORT INFORMATION
  Report Type: Spontaneous
  Country: FR (occurrence: FR)
  Receive Date: 20200526
  Receipt Date: 20200526
  Transmission Date: 20200714
  Serious: Yes (Hospitalization, Other)
  Sender: FDA-Public Use
  Company Number: FR-SA-2019SA093551

PATIENT
  Age: 42 Year
  Sex: Female
  Weight: 52 kg

DRUGS (3)
  1. LEMTRADA [Suspect]
     Active Substance: ALEMTUZUMAB
     Dosage: UNK
     Route: 041
  2. LEMTRADA [Suspect]
     Active Substance: ALEMTUZUMAB
     Dosage: UNK
     Route: 041
  3. LEMTRADA [Suspect]
     Active Substance: ALEMTUZUMAB
     Indication: MULTIPLE SCLEROSIS
     Dosage: UNK, UNK
     Route: 041
     Dates: start: 20190211, end: 20190213

REACTIONS (8)
  - Sinus tachycardia [Not Recovered/Not Resolved]
  - Erythema [Unknown]
  - Electrocardiogram ambulatory [Unknown]
  - Hot flush [Recovered/Resolved]
  - Flushing [Recovered/Resolved]
  - Chills [Recovered/Resolved]
  - Multiple sclerosis relapse [Unknown]
  - Palpitations [Not Recovered/Not Resolved]

NARRATIVE: CASE EVENT DATE: 20190212
